FAERS Safety Report 8173466-1 (Version None)
Quarter: 2012Q1

REPORT INFORMATION
  Report Type: 
  Country: None (occurrence: None)
  Receive Date: 20120229
  Receipt Date: 20120222
  Transmission Date: 20120608
  Serious: Yes (Hospitalization, Other)
  Sender: FDA-Public Use
  Company Number: US-ABBOTT-12P-163-0894291-00

PATIENT
  Sex: Male
  Weight: 89.438 kg

DRUGS (11)
  1. CADUET [Concomitant]
     Indication: BLOOD CHOLESTEROL INCREASED
  2. EFFIENT [Concomitant]
     Indication: PRODUCT USED FOR UNKNOWN INDICATION
  3. BYSTOLIC [Concomitant]
     Indication: HYPERTENSION
  4. TENORMIN [Concomitant]
     Indication: HYPERTENSION
  5. HUMIRA [Suspect]
     Indication: PSORIATIC ARTHROPATHY
     Dates: start: 20101201, end: 20111215
  6. BYSTOLIC [Concomitant]
     Indication: PRODUCT USED FOR UNKNOWN INDICATION
  7. LASIX [Concomitant]
     Indication: HYPERTENSION
  8. METHOTREXATE [Concomitant]
     Indication: PSORIATIC ARTHROPATHY
  9. CELEBREX [Concomitant]
     Indication: PSORIATIC ARTHROPATHY
  10. HUMIRA [Suspect]
     Dates: start: 20120120
  11. ASPIRIN [Concomitant]
     Indication: CARDIOVASCULAR EVENT PROPHYLAXIS

REACTIONS (5)
  - PSORIASIS [None]
  - ARTERIAL OCCLUSIVE DISEASE [None]
  - DRUG EFFECT DECREASED [None]
  - MYOCARDIAL INFARCTION [None]
  - PROCEDURAL PAIN [None]
